FAERS Safety Report 17590959 (Version 1)
Quarter: 2020Q1

REPORT INFORMATION
  Report Type: Spontaneous
  Country: US (occurrence: US)
  Receive Date: 20200326
  Receipt Date: 20200326
  Transmission Date: 20200409
  Serious: Yes (Hospitalization)
  Sender: FDA-Public Use
  Company Number: None

PATIENT
  Sex: Male
  Weight: 92.17 kg

DRUGS (6)
  1. CYCLOPHOSPHAMIDE. [Suspect]
     Active Substance: CYCLOPHOSPHAMIDE
     Dates: start: 20200229
  2. VINCRISTINE SULFATE. [Suspect]
     Active Substance: VINCRISTINE SULFATE
     Dates: start: 20200229
  3. ETOPOSIDE (VP-16) [Suspect]
     Active Substance: ETOPOSIDE
  4. DOXORUBICIN HYDROCHLORIDE. [Suspect]
     Active Substance: DOXORUBICIN HYDROCHLORIDE
     Dates: start: 20200229
  5. PREDNISONE. [Suspect]
     Active Substance: PREDNISONE
     Dates: start: 20200229
  6. RITUXIMAB (MOABC2B8 ANTI CD20, CHIMERIC) [Suspect]
     Active Substance: RITUXIMAB

REACTIONS (5)
  - Perirectal abscess [None]
  - Pyrexia [None]
  - Urinary hesitation [None]
  - Proctalgia [None]
  - Chills [None]

NARRATIVE: CASE EVENT DATE: 20200316
